FAERS Safety Report 7011736-0 (Version None)
Quarter: 2010Q3

REPORT INFORMATION
  Report Type: 
  Country: None (occurrence: None)
  Receive Date: 20100923
  Receipt Date: 20090325
  Transmission Date: 20110219
  Serious: No
  Sender: FDA-Public Use
  Company Number: US-WYE-H08712709

PATIENT
  Age: 32 Year
  Sex: Female
  Weight: 63.56 kg

DRUGS (1)
  1. ADVIL COLD AND SINUS [Suspect]
     Indication: INFLUENZA
     Route: 048
     Dates: start: 20090321, end: 20090324

REACTIONS (2)
  - CONDITION AGGRAVATED [None]
  - INFLUENZA [None]
